FAERS Safety Report 4778983-X (Version None)
Quarter: 2005Q3

REPORT INFORMATION
  Report Type: 
  Country: None (occurrence: None)
  Receive Date: 20050914
  Receipt Date: 20050519
  Transmission Date: 20060218
  Serious: Yes (Other)
  Sender: FDA-Public Use
  Company Number: 405284

PATIENT
  Sex: Female
  Weight: 72.1 kg

DRUGS (9)
  1. BONIVA [Suspect]
     Indication: OSTEOPOROSIS
     Dosage: ORAL
     Route: 048
     Dates: start: 20050514
  2. AMITRIPTYLINE HCL [Concomitant]
  3. PROPRANOLOL [Concomitant]
  4. BUSPIRONE (BUSPIRONE HYDROCHLORIDE) [Concomitant]
  5. ANTIVERT (MECLOZINE) [Concomitant]
  6. LORAZEPAM [Concomitant]
  7. COZAAR [Concomitant]
  8. VITAMIN (VITAMIN NOS) [Concomitant]
  9. LEVOTHROID [Concomitant]

REACTIONS (12)
  - ARTHRALGIA [None]
  - DIZZINESS [None]
  - DYSPHONIA [None]
  - EXOSTOSIS [None]
  - FATIGUE [None]
  - HEADACHE [None]
  - INFLUENZA LIKE ILLNESS [None]
  - MUSCULOSKELETAL STIFFNESS [None]
  - MYALGIA [None]
  - PAIN [None]
  - PHARYNGOLARYNGEAL PAIN [None]
  - TREMOR [None]
